FAERS Safety Report 5564779-8 (Version None)
Quarter: 2007Q4

REPORT INFORMATION
  Report Type: 
  Country: None (occurrence: None)
  Receive Date: 20071213
  Receipt Date: 20071213
  Transmission Date: 20080405
  Serious: Yes (Life-Threatening, Hospitalization)
  Sender: FDA-Public Use
  Company Number: None

PATIENT
  Age: 55 Year
  Sex: Male
  Weight: 70.3075 kg

DRUGS (1)
  1. AVELOX [Suspect]
     Indication: SINUSITIS
     Dosage: 400 MG  ONCE DAILY  PO
     Route: 048
     Dates: start: 20061013, end: 20071121

REACTIONS (20)
  - ACTIVITIES OF DAILY LIVING IMPAIRED [None]
  - ARTHROPATHY [None]
  - BLISTER [None]
  - CHILLS [None]
  - DEHYDRATION [None]
  - DIABETES MELLITUS INADEQUATE CONTROL [None]
  - DYSGEUSIA [None]
  - HEPATIC ENZYME ABNORMAL [None]
  - HYPERTHYROIDISM [None]
  - IMPAIRED WORK ABILITY [None]
  - MALAISE [None]
  - MUSCLE DISORDER [None]
  - PARAESTHESIA [None]
  - RASH ERYTHEMATOUS [None]
  - RASH GENERALISED [None]
  - RENAL FAILURE [None]
  - SKIN DISCOLOURATION [None]
  - SKIN EXFOLIATION [None]
  - TYPE 1 DIABETES MELLITUS [None]
  - WEIGHT DECREASED [None]
